FAERS Safety Report 8089744-0 (Version None)
Quarter: 2012Q1

REPORT INFORMATION
  Report Type: 
  Country: None (occurrence: None)
  Receive Date: 20120128
  Receipt Date: 20110630
  Transmission Date: 20120608
  Serious: No
  Sender: FDA-Public Use
  Company Number: US-ABBOTT-11P-163-0836197-00

PATIENT
  Sex: Female
  Weight: 69.462 kg

DRUGS (11)
  1. PRAVASTATIN [Concomitant]
     Indication: BLOOD CHOLESTEROL INCREASED
     Route: 048
  2. LOVAZA [Concomitant]
     Indication: SUPPLEMENTATION THERAPY
     Route: 048
  3. HUMIRA [Suspect]
     Indication: PSORIATIC ARTHROPATHY
     Route: 058
     Dates: start: 20110201
  4. MAXZIDE [Concomitant]
     Indication: HYPERTENSION
     Route: 048
  5. LORTAB [Concomitant]
     Indication: ARTHRALGIA
     Route: 048
  6. FLEXERIL [Concomitant]
     Indication: FIBROMYALGIA
     Route: 048
  7. SYNTHROID [Concomitant]
     Indication: HYPOTHYROIDISM
     Route: 048
  8. METHOTREXATE [Concomitant]
     Indication: PSORIATIC ARTHROPATHY
     Route: 048
     Dates: start: 20090101
  9. NORVASC [Concomitant]
     Indication: HYPERTENSION
     Route: 048
  10. FOLIC ACID [Concomitant]
     Indication: VITAMIN SUPPLEMENTATION
     Route: 048
  11. LORTAB [Concomitant]
     Indication: FIBROMYALGIA

REACTIONS (2)
  - WEIGHT INCREASED [None]
  - HEPATIC ENZYME INCREASED [None]
